FAERS Safety Report 23259698 (Version 3)
Quarter: 2023Q4

REPORT INFORMATION
  Report Type: Spontaneous
  Country: TR (occurrence: TR)
  Receive Date: 20231204
  Receipt Date: 20231221
  Transmission Date: 20240110
  Serious: Yes (Hospitalization, Other)
  Sender: FDA-Public Use
  Company Number: TR-PFIZER INC-PV202300194090

PATIENT
  Age: 17 Year
  Sex: Female
  Weight: 45 kg

DRUGS (1)
  1. ABROCITINIB [Suspect]
     Active Substance: ABROCITINIB
     Indication: Dermatitis atopic
     Dosage: 100 MG, 1X/DAY
     Route: 048
     Dates: start: 202308, end: 202311

REACTIONS (1)
  - Eczema herpeticum [Recovered/Resolved]

NARRATIVE: CASE EVENT DATE: 20231101
